FAERS Safety Report 7412132-4 (Version None)
Quarter: 2011Q2

REPORT INFORMATION
  Report Type: 
  Country: None (occurrence: None)
  Receive Date: 20110413
  Receipt Date: 20110321
  Transmission Date: 20111010
  Serious: Yes (Hospitalization, Other)
  Sender: FDA-Public Use
  Company Number: US-BAYER-201039686NA

PATIENT
  Age: 39 Year
  Sex: Female
  Weight: 74.83 kg

DRUGS (2)
  1. ALEVE [Concomitant]
  2. YASMIN [Suspect]
     Indication: CONTRACEPTION
     Route: 048
     Dates: start: 20011101, end: 20031001

REACTIONS (3)
  - PULMONARY EMBOLISM [None]
  - PSYCHIATRIC SYMPTOM [None]
  - ANXIETY [None]
